FAERS Safety Report 5876588-0 (Version None)
Quarter: 2008Q3

REPORT INFORMATION
  Report Type: 
  Country: None (occurrence: None)
  Receive Date: 20080910
  Receipt Date: 20080722
  Transmission Date: 20090109
  Serious: No
  Sender: FDA-Public Use
  Company Number: US-BAYER-200829383NA

PATIENT
  Age: 23 Year
  Sex: Female

DRUGS (1)
  1. MIRENA [Suspect]
     Indication: CONTRACEPTION
     Route: 015
     Dates: start: 20070501

REACTIONS (5)
  - ABDOMINAL PAIN [None]
  - BREAST DISCOMFORT [None]
  - LIBIDO INCREASED [None]
  - MENORRHAGIA [None]
  - VAGINAL HAEMORRHAGE [None]
